FAERS Safety Report 24411240 (Version 1)
Quarter: 2024Q4

REPORT INFORMATION
  Report Type: Spontaneous
  Country: US (occurrence: US)
  Receive Date: 20241008
  Receipt Date: 20241008
  Transmission Date: 20250115
  Serious: Yes (Hospitalization)
  Sender: PAREXEL
  Company Number: US-SECURA BIO, INC.-2024-SECUR-US000074

PATIENT

DRUGS (2)
  1. COPIKTRA [Suspect]
     Active Substance: DUVELISIB
     Indication: Peripheral T-cell lymphoma unspecified
     Dosage: 25 MG, BID
     Route: 048
  2. COPIKTRA [Suspect]
     Active Substance: DUVELISIB
     Dosage: 75 MG, BID
     Route: 048

REACTIONS (5)
  - Off label use [Unknown]
  - Pain [Unknown]
  - Skin lesion [Unknown]
  - Nausea [Unknown]
  - Fatigue [Unknown]
